FAERS Safety Report 17346056 (Version 1)
Quarter: 2020Q1

REPORT INFORMATION
  Report Type: Spontaneous
  Country: FR (occurrence: FR)
  Receive Date: 20200129
  Receipt Date: 20200129
  Transmission Date: 20200409
  Serious: Yes (Other)
  Sender: FDA-Public Use
  Company Number: FR-PFIZER INC-2020036264

PATIENT
  Age: 84 Year
  Sex: Male
  Weight: 63 kg

DRUGS (1)
  1. VYNDAQEL [Suspect]
     Active Substance: TAFAMIDIS MEGLUMINE
     Dosage: 20 MG, DAILY

REACTIONS (3)
  - Cardiac failure [Unknown]
  - Cognitive disorder [Unknown]
  - General physical health deterioration [Unknown]
